FAERS Safety Report 8525774-X (Version None)
Quarter: 2012Q3

REPORT INFORMATION
  Report Type: 
  Country: None (occurrence: None)
  Receive Date: 20120720
  Receipt Date: 20120709
  Transmission Date: 20120928
  Serious: No
  Sender: FDA-Public Use
  Company Number: US-ASTRAZENECA-2012SE47386

PATIENT
  Age: 50 Year
  Sex: Female

DRUGS (2)
  1. SEROQUEL XR [Concomitant]
     Indication: SLEEP DISORDER
  2. NEXIUM [Suspect]
     Route: 048

REACTIONS (2)
  - DRUG DOSE OMISSION [None]
  - ABDOMINAL PAIN UPPER [None]
